FAERS Safety Report 24351345 (Version 1)
Quarter: 2024Q3

REPORT INFORMATION
  Report Type: Report from Study
  Country: CA (occurrence: CA)
  Receive Date: 20240923
  Receipt Date: 20240923
  Transmission Date: 20241016
  Serious: Yes (Death, Hospitalization)
  Sender: JOHNSON AND JOHNSON
  Company Number: CA-JNJFOC-20240820373

PATIENT
  Age: 70 Year
  Sex: Male

DRUGS (13)
  1. MACITENTAN [Suspect]
     Active Substance: MACITENTAN
     Indication: Pulmonary hypertension
     Route: 048
     Dates: start: 20221103
  2. FUROSEMIDE [Concomitant]
     Active Substance: FUROSEMIDE
  3. ROSUVASTATIN [Concomitant]
     Active Substance: ROSUVASTATIN\ROSUVASTATIN CALCIUM
  4. GLICLAZIDE [Concomitant]
     Active Substance: GLICLAZIDE
  5. POTASSIUM CHLORIDE [Concomitant]
     Active Substance: POTASSIUM CHLORIDE
  6. SPIRONOLACTONE [Concomitant]
     Active Substance: SPIRONOLACTONE
  7. METFORMIN [Concomitant]
     Active Substance: METFORMIN HYDROCHLORIDE
  8. ERGOCALCIFEROL [Concomitant]
     Active Substance: ERGOCALCIFEROL
  9. APIXABAN [Concomitant]
     Active Substance: APIXABAN
  10. MYCOPHENOLIC ACID [Concomitant]
     Active Substance: MYCOPHENOLIC ACID
  11. TYLENOL [Concomitant]
     Active Substance: ACETAMINOPHEN
  12. TOLOXIM [Concomitant]
  13. JAMP K8 [Concomitant]

REACTIONS (2)
  - Death [Fatal]
  - Hospitalisation [Unknown]
